FAERS Safety Report 7292302-9 (Version None)
Quarter: 2011Q1

REPORT INFORMATION
  Report Type: 
  Country: None (occurrence: None)
  Receive Date: 20110215
  Receipt Date: 20110204
  Transmission Date: 20110831
  Serious: Yes (Hospitalization)
  Sender: FDA-Public Use
  Company Number: PHHO2011AR01556

PATIENT
  Sex: Female
  Weight: 77 kg

DRUGS (6)
  1. BLINDED ALISKIREN [Suspect]
     Indication: CARDIAC FAILURE
     Dosage: NO TREATMENT
  2. ENALAPRIL MALEATE [Suspect]
     Indication: CARDIAC FAILURE
     Dosage: NO TREATMENT
  3. ENALAPRIL MALEATE [Suspect]
     Indication: CARDIAC FAILURE
     Dosage: 10 MG, UNK
     Route: 048
     Dates: start: 20100715
  4. BLINDED NO TREATMENT RECEIVED [Suspect]
     Indication: CARDIAC FAILURE
     Dosage: NO TREATMENT
  5. ALISKIREN [Suspect]
     Indication: CARDIAC FAILURE
     Dosage: 300 MG, UNK
     Route: 048
     Dates: start: 20100825
  6. CARVEDILOL [Concomitant]
     Indication: CARDIAC FAILURE
     Dosage: UNK
     Dates: start: 20040101

REACTIONS (4)
  - CHOLELITHIASIS [None]
  - BILE DUCT OBSTRUCTION [None]
  - ABDOMINAL PAIN [None]
  - CONCOMITANT DISEASE PROGRESSION [None]
